FAERS Safety Report 18574033 (Version 1)
Quarter: 2020Q4

REPORT INFORMATION
  Report Type: Spontaneous
  Country: US (occurrence: US)
  Receive Date: 20201202
  Receipt Date: 20201202
  Transmission Date: 20210114
  Serious: No
  Sender: FDA-Public Use
  Company Number: None

PATIENT
  Age: 72 Year
  Sex: Male

DRUGS (1)
  1. ALIROCUMAB (ALIROCUMAB 75MG/ML INJ, SYR, 1ML) [Suspect]
     Active Substance: ALIROCUMAB
     Indication: HYPERLIPIDAEMIA
     Route: 058
     Dates: start: 20170504, end: 20171113

REACTIONS (3)
  - Myalgia [None]
  - Cough [None]
  - Oropharyngeal pain [None]

NARRATIVE: CASE EVENT DATE: 20170726
